FAERS Safety Report 21612850 (Version 4)
Quarter: 2024Q2

REPORT INFORMATION
  Report Type: Spontaneous
  Country: PT (occurrence: PT)
  Receive Date: 20221118
  Receipt Date: 20240622
  Transmission Date: 20240715
  Serious: Yes (Life-Threatening, Hospitalization, Other)
  Sender: FDA-Public Use
  Company Number: PT-ASTELLAS-2022US038265

PATIENT
  Age: 43 Year
  Sex: Male

DRUGS (20)
  1. AMOXICILLIN\CLAVULANIC ACID [Suspect]
     Active Substance: AMOXICILLIN\CLAVULANIC ACID
     Indication: Pyrexia
     Dosage: UNK
     Route: 065
  2. AMOXICILLIN\CLAVULANIC ACID [Suspect]
     Active Substance: AMOXICILLIN\CLAVULANIC ACID
     Indication: Odynophagia
  3. AMOXICILLIN\CLAVULANIC ACID [Suspect]
     Active Substance: AMOXICILLIN\CLAVULANIC ACID
     Indication: Tonsillitis
  4. MEROPENEM [Suspect]
     Active Substance: MEROPENEM
     Indication: Odynophagia
     Dosage: UNK
     Route: 065
  5. MEROPENEM [Suspect]
     Active Substance: MEROPENEM
     Indication: Lymphadenopathy
  6. PIPERACILLIN AND TAZOBACTAM [Suspect]
     Active Substance: PIPERACILLIN SODIUM\TAZOBACTAM SODIUM
     Indication: Lymphadenopathy
     Dosage: UNK
     Route: 065
  7. PIPERACILLIN AND TAZOBACTAM [Suspect]
     Active Substance: PIPERACILLIN SODIUM\TAZOBACTAM SODIUM
     Indication: Odynophagia
  8. VANCOMYCIN [Suspect]
     Active Substance: VANCOMYCIN
     Indication: Odynophagia
     Dosage: UNK
     Route: 065
  9. VANCOMYCIN [Suspect]
     Active Substance: VANCOMYCIN
     Indication: Lymphadenopathy
  10. PENICILLIN G [Suspect]
     Active Substance: PENICILLIN G
     Indication: Odynophagia
     Dosage: 3 DOSAGE FORM (1 TOTAL)
     Route: 065
  11. PENICILLIN G [Suspect]
     Active Substance: PENICILLIN G
     Indication: Tonsillitis
  12. PENICILLIN G [Suspect]
     Active Substance: PENICILLIN G
     Indication: Pyrexia
  13. PENICILLIN G BENZATHINE [Suspect]
     Active Substance: PENICILLIN G BENZATHINE
     Indication: Odynophagia
     Dosage: UNK
     Route: 065
  14. PENICILLIN G BENZATHINE [Suspect]
     Active Substance: PENICILLIN G BENZATHINE
     Indication: Pyrexia
  15. FILGRASTIM [Suspect]
     Active Substance: FILGRASTIM
     Indication: Lymphadenopathy
     Dosage: UNK
     Route: 065
  16. FILGRASTIM [Suspect]
     Active Substance: FILGRASTIM
     Indication: Odynophagia
  17. FILGRASTIM [Concomitant]
     Active Substance: FILGRASTIM
     Indication: Lymphadenopathy
     Dosage: UNK
     Route: 065
  18. FILGRASTIM [Concomitant]
     Active Substance: FILGRASTIM
     Indication: Odynophagia
  19. VANCOMYCIN [Concomitant]
     Active Substance: VANCOMYCIN
     Indication: Lymphadenopathy
     Dosage: UNK
     Route: 065
  20. VANCOMYCIN [Concomitant]
     Active Substance: VANCOMYCIN
     Indication: Odynophagia

REACTIONS (6)
  - Agranulocytosis [Recovered/Resolved]
  - Odynophagia [Recovered/Resolved]
  - Pyrexia [Recovered/Resolved]
  - Leukopenia [Recovered/Resolved]
  - Lymphadenopathy [Recovered/Resolved]
  - Off label use [Unknown]
